FAERS Safety Report 9116474 (Version 4)
Quarter: 2013Q2

REPORT INFORMATION
  Report Type: Spontaneous
  Country: DE (occurrence: DE)
  Receive Date: 20130225
  Receipt Date: 20130410
  Transmission Date: 20140414
  Serious: Yes (Hospitalization, Other)
  Sender: FDA-Public Use
  Company Number: DE-US-EMD SERONO, INC.-7195436

PATIENT
  Age: 37 Year
  Sex: Male

DRUGS (3)
  1. REBIF [Suspect]
     Indication: RELAPSING-REMITTING MULTIPLE SCLEROSIS
     Route: 058
     Dates: start: 200801
  2. REBIF [Suspect]
     Route: 058
     Dates: start: 20130218
  3. METHYLPREDNISOLONE [Concomitant]
     Indication: MULTIPLE SCLEROSIS
     Route: 042
     Dates: start: 20130219, end: 20130219

REACTIONS (4)
  - Lactic acidosis [Recovered/Resolved]
  - Blood glucose increased [Unknown]
  - Anaphylactic shock [Recovered/Resolved]
  - Central nervous system lesion [Unknown]
